FAERS Safety Report 15269819 (Version 1)
Quarter: 2018Q3

REPORT INFORMATION
  Report Type: Spontaneous
  Country: US (occurrence: US)
  Receive Date: 20180813
  Receipt Date: 20180813
  Transmission Date: 20181010
  Serious: No
  Sender: FDA-Public Use
  Company Number: US-BAYER-2018-144665

PATIENT
  Age: 88 Year
  Sex: Female
  Weight: 70.29 kg

DRUGS (1)
  1. MIRALAX [Suspect]
     Active Substance: POLYETHYLENE GLYCOL 3350
     Indication: GASTROINTESTINAL DISORDER
     Dosage: 1 DF, UNK
     Route: 048
     Dates: start: 20180729

REACTIONS (2)
  - Product contamination physical [None]
  - Poor quality drug administered [None]

NARRATIVE: CASE EVENT DATE: 20180729
